FAERS Safety Report 15480437 (Version 7)
Quarter: 2018Q4

REPORT INFORMATION
  Report Type: Report from Study
  Country: None (occurrence: CH)
  Receive Date: 20181009
  Receipt Date: 20181226
  Transmission Date: 20190205
  Serious: Yes (Hospitalization, Other)
  Sender: FDA-Public Use
  Company Number: CH-ABBVIE-18K-151-2357239-00

PATIENT
  Age: 79 Year
  Sex: Female
  Weight: 37 kg

DRUGS (13)
  1. DUODOPA [Suspect]
     Active Substance: CARBIDOPA\LEVODOPA
     Dosage: MD: 7,5ML, CD: 2.2ML/H, ED: 1ML
     Route: 050
     Dates: start: 20170904, end: 20180514
  2. DUODOPA [Suspect]
     Active Substance: CARBIDOPA\LEVODOPA
     Dosage: MD 7.5ML, CRD 3.0ML, ED 1.7 ML
     Route: 050
     Dates: start: 20181004, end: 2018
  3. DUODOPA [Suspect]
     Active Substance: CARBIDOPA\LEVODOPA
     Dosage: 16H THERAPY, MD 7.5ML, CRD 3.0ML, ED 1.7 ML
     Route: 050
     Dates: start: 20181212, end: 20181214
  4. DUODOPA [Suspect]
     Active Substance: CARBIDOPA\LEVODOPA
     Dosage: 24H THERAPY, UNKNOWN DOSING
     Route: 050
     Dates: start: 20181214
  5. DUODOPA [Suspect]
     Active Substance: CARBIDOPA\LEVODOPA
     Dosage: 16H THERAPY. MD 7.5ML, CRD 3.0ML, ED 1.7 ML
     Route: 050
     Dates: start: 20181207, end: 20181212
  6. DUODOPA [Suspect]
     Active Substance: CARBIDOPA\LEVODOPA
     Indication: PARKINSON^S DISEASE
     Route: 050
     Dates: start: 20170703, end: 20170703
  7. XANAX [Concomitant]
     Active Substance: ALPRAZOLAM
  8. DUODOPA [Suspect]
     Active Substance: CARBIDOPA\LEVODOPA
     Dosage: 16H THERAPY?MD: 7,5ML; CD: 2.7ML/H; ED: 1,7ML
     Route: 050
     Dates: start: 20180514, end: 20180613
  9. DUODOPA [Suspect]
     Active Substance: CARBIDOPA\LEVODOPA
     Route: 050
     Dates: start: 20170703, end: 20170816
  10. SINEMET [Concomitant]
     Active Substance: CARBIDOPA\LEVODOPA
     Indication: PRODUCT USED FOR UNKNOWN INDICATION
  11. DUODOPA [Suspect]
     Active Substance: CARBIDOPA\LEVODOPA
     Dosage: MD: 7ML, CD: 2.1ML/H, ED: 1ML
     Route: 050
     Dates: start: 20170816, end: 20170904
  12. XANAX [Concomitant]
     Active Substance: ALPRAZOLAM
     Indication: PRODUCT USED FOR UNKNOWN INDICATION
  13. DUODOPA [Suspect]
     Active Substance: CARBIDOPA\LEVODOPA
     Dosage: 16H THERAPY MD: 7,5ML; CD: 2.7ML/H; ED: 1,7ML, CRD 3.0ML/HR
     Route: 050
     Dates: start: 20180613, end: 20181004

REACTIONS (18)
  - Device issue [Unknown]
  - Freezing phenomenon [Not Recovered/Not Resolved]
  - Pain [Not Recovered/Not Resolved]
  - Stoma site discharge [Recovered/Resolved]
  - Gastrointestinal stoma complication [Recovered/Resolved]
  - Stoma site infection [Recovered/Resolved]
  - Myosclerosis [Not Recovered/Not Resolved]
  - Device issue [Recovered/Resolved]
  - Device dislocation [Unknown]
  - Anxiety disorder [Not Recovered/Not Resolved]
  - Camptocormia [Not Recovered/Not Resolved]
  - Stoma site reaction [Recovered/Resolved]
  - Gastrointestinal procedural complication [Recovered/Resolved]
  - Stoma site irritation [Unknown]
  - Haemorrhage [Recovered/Resolved]
  - Skin disorder [Recovered/Resolved]
  - Pleurothotonus [Not Recovered/Not Resolved]
  - Dementia [Not Recovered/Not Resolved]

NARRATIVE: CASE EVENT DATE: 2018
